FAERS Safety Report 9323605 (Version 2)
Quarter: 2014Q1

REPORT INFORMATION
  Report Type: Spontaneous
  Country: US (occurrence: US)
  Receive Date: 20130603
  Receipt Date: 20140130
  Transmission Date: 20141002
  Serious: Yes (Other)
  Sender: FDA-Public Use
  Company Number: US-AMGEN-USASP2013038767

PATIENT
  Age: 68 Year
  Sex: Female

DRUGS (6)
  1. PROLIA [Suspect]
     Indication: OSTEOPOROSIS
     Dosage: UNK
     Route: 065
     Dates: start: 20120524
  2. PANTOPRAZOLE [Concomitant]
     Indication: GASTROOESOPHAGEAL REFLUX DISEASE
  3. TUMS                               /00193601/ [Concomitant]
  4. VITAMIN D                          /00107901/ [Concomitant]
  5. MULTIVITAMIN                       /00097801/ [Concomitant]
  6. CELEXA                             /00582602/ [Concomitant]

REACTIONS (5)
  - Humerus fracture [Recovered/Resolved]
  - Chest pain [Unknown]
  - Myalgia [Unknown]
  - Back pain [Unknown]
  - Upper respiratory tract infection [Not Recovered/Not Resolved]
